FAERS Safety Report 16759383 (Version 1)
Quarter: 2019Q4

REPORT INFORMATION
  Report Type: Spontaneous
  Country: US (occurrence: US)
  Receive Date: 20190829
  Receipt Date: 20190829
  Transmission Date: 20200122
  Serious: Yes (Other)
  Sender: FDA-Public Use
  Company Number: None

PATIENT
  Age: 69 Year
  Sex: Female
  Weight: 67.5 kg

DRUGS (1)
  1. TINIDAZOLE (500) MG [Suspect]
     Active Substance: TINIDAZOLE
     Indication: GIARDIASIS
     Dosage: ?          QUANTITY:4 CAPSULE(S);OTHER FREQUENCY:ALL 4 TABLETS AT;?
     Route: 048
     Dates: start: 20190821, end: 20190821

REACTIONS (3)
  - Neck pain [None]
  - Musculoskeletal stiffness [None]
  - Musculoskeletal pain [None]

NARRATIVE: CASE EVENT DATE: 20190821
